FAERS Safety Report 4607507-2 (Version None)
Quarter: 2005Q1

REPORT INFORMATION
  Report Type: 
  Country: None (occurrence: None)
  Receive Date: 20050310
  Receipt Date: 20050225
  Transmission Date: 20050727
  Serious: Yes (Other)
  Sender: FDA-Public Use
  Company Number: TNZDE200500008

PATIENT
  Age: 37 Year
  Sex: Female
  Weight: 46 kg

DRUGS (1)
  1. INNOHEP [Suspect]
     Indication: DEEP VEIN THROMBOSIS
     Dosage: WEIGHT-ADAPTED (1 DOSAGE FORMS, ONCE DAILY), SUBCUTANEOUS
     Route: 058
     Dates: start: 20041001

REACTIONS (14)
  - DERMATITIS ACNEIFORM [None]
  - DISEASE RECURRENCE [None]
  - FATIGUE [None]
  - HYPOAESTHESIA [None]
  - HYPOCHONDRIASIS [None]
  - MENTAL DISORDER [None]
  - MUSCLE SPASMS [None]
  - OEDEMA PERIPHERAL [None]
  - PSORIASIS [None]
  - SCOTOMA [None]
  - SKIN BURNING SENSATION [None]
  - VASCULITIS [None]
  - VISUAL ACUITY REDUCED [None]
  - VISUAL DISTURBANCE [None]
